FAERS Safety Report 8479453-8 (Version None)
Quarter: 2012Q2

REPORT INFORMATION
  Report Type: 
  Country: None (occurrence: None)
  Receive Date: 20120629
  Receipt Date: 20120618
  Transmission Date: 20120825
  Serious: Yes (Other)
  Sender: FDA-Public Use
  Company Number: JP-VERTEX PHARMACEUTICALS INC.-AE-2012-006842

PATIENT
  Age: 68 Year
  Sex: Male

DRUGS (11)
  1. ALLOPURINOL [Concomitant]
     Route: 048
  2. TELAVIC (TELAPREVIR) [Suspect]
     Route: 048
     Dates: start: 20120323, end: 20120413
  3. RIBAVIRIN [Concomitant]
     Route: 048
     Dates: start: 20120309
  4. PLAVIX [Concomitant]
     Route: 048
  5. BISOPROLOL FUMARATE [Concomitant]
     Route: 048
  6. WARFARIN SODIUM [Concomitant]
     Route: 048
  7. ADALAT CC [Concomitant]
     Route: 048
  8. TELAVIC (TELAPREVIR) [Suspect]
     Indication: HEPATITIS C
     Route: 048
     Dates: start: 20120309, end: 20120322
  9. PEGINTERFERON ALFA-2B [Concomitant]
     Route: 058
     Dates: start: 20120309
  10. RIBAVIRIN [Concomitant]
     Route: 048
  11. OLMESARTAN MEDOXOMIL [Concomitant]
     Route: 048

REACTIONS (1)
  - BLOOD CREATININE INCREASED [None]
